FAERS Safety Report 5443807-4 (Version None)
Quarter: 2007Q3

REPORT INFORMATION
  Report Type: 
  Country: None (occurrence: None)
  Receive Date: 20070905
  Receipt Date: 20070824
  Transmission Date: 20080115
  Serious: Yes (Other)
  Sender: FDA-Public Use
  Company Number: US-PFIZER INC-2007071829

PATIENT
  Sex: Female
  Weight: 90.7 kg

DRUGS (16)
  1. CHANTIX [Suspect]
     Indication: SMOKING CESSATION THERAPY
     Dates: start: 20070814, end: 20070823
  2. ATENOLOL [Concomitant]
  3. LORAZEPAM [Concomitant]
  4. ACTIVELLA [Concomitant]
  5. IMIPRAMINE [Concomitant]
  6. ZETIA [Concomitant]
  7. TRICOR [Concomitant]
  8. LASIX [Concomitant]
  9. SPIRONOLACTONE [Concomitant]
  10. DOXAZOSIN MESYLATE [Concomitant]
  11. ASPIRIN [Concomitant]
  12. CALCIUM [Concomitant]
  13. VITAMINS [Concomitant]
  14. ALL OTHER THERAPEUTIC PRODUCTS [Concomitant]
  15. ADVIL LIQUI-GELS [Concomitant]
  16. VICODIN [Concomitant]

REACTIONS (5)
  - DIZZINESS [None]
  - HEADACHE [None]
  - HIP ARTHROPLASTY [None]
  - NAUSEA [None]
  - PANIC ATTACK [None]
